FAERS Safety Report 4365929-1 (Version None)
Quarter: 2004Q2

REPORT INFORMATION
  Report Type: 
  Country: None (occurrence: None)
  Receive Date: 20040521
  Receipt Date: 20040427
  Transmission Date: 20050107
  Serious: Yes (Hospitalization, Other)
  Sender: FDA-Public Use
  Company Number: JP_040302766

PATIENT
  Age: 33 Year
  Sex: Male
  Weight: 61 kg

DRUGS (4)
  1. ZYPREXA [Suspect]
     Indication: SCHIZOPHRENIA, UNDIFFERENTIATED TYPE
     Dosage: 5 MG/1 DAY
     Dates: start: 20021105, end: 20030622
  2. ROHIPNOL (FLUNITRAZEPAM) [Concomitant]
  3. ZOLPIDEM TARTRATE [Concomitant]
  4. AKINETON [Concomitant]

REACTIONS (11)
  - AKATHISIA [None]
  - ANOREXIA [None]
  - BEDRIDDEN [None]
  - CONDITION AGGRAVATED [None]
  - DEPRESSIVE SYMPTOM [None]
  - INSOMNIA [None]
  - NASOPHARYNGITIS [None]
  - NIGHTMARE [None]
  - PSYCHIATRIC SYMPTOM [None]
  - SUICIDAL IDEATION [None]
  - TREATMENT NONCOMPLIANCE [None]
